FAERS Safety Report 4324261-2 (Version None)
Quarter: 2004Q1

REPORT INFORMATION
  Report Type: 
  Country: None (occurrence: None)
  Receive Date: 20040326
  Receipt Date: 20040116
  Transmission Date: 20041129
  Serious: No
  Sender: FDA-Public Use
  Company Number: US-GLAXOSMITHKLINE-A0493581A

PATIENT
  Age: 60 Year
  Sex: Male

DRUGS (4)
  1. ADVAIR DISKUS 100/50 [Suspect]
     Indication: ASTHMA
     Dosage: 1PUFF TWICE PER DAY
     Route: 055
     Dates: start: 20030101
  2. SINGULAIR [Concomitant]
     Dosage: 10MG PER DAY
  3. MAXAIR [Concomitant]
     Route: 055
  4. NASACORT [Concomitant]
     Route: 045

REACTIONS (3)
  - ORAL CANDIDIASIS [None]
  - ORAL PAIN [None]
  - TONGUE DISCOLOURATION [None]
